FAERS Safety Report 4447031-3 (Version None)
Quarter: 2004Q3

REPORT INFORMATION
  Report Type: 
  Country: None (occurrence: None)
  Receive Date: 20040812
  Receipt Date: 20040505
  Transmission Date: 20050211
  Serious: No
  Sender: FDA-Public Use
  Company Number: US_0404102329

PATIENT
  Age: 72 Year
  Sex: Male

DRUGS (4)
  1. CIALIS [Suspect]
     Dosage: 20 MG/ONCE
     Dates: start: 20040414
  2. DICLOFENAC [Concomitant]
  3. CLONIDINE HCL [Concomitant]
  4. XANAX [Concomitant]

REACTIONS (2)
  - DRUG INTERACTION [None]
  - ERECTION INCREASED [None]
